FAERS Safety Report 11758030 (Version 2)
Quarter: 2015Q4

REPORT INFORMATION
  Report Type: Spontaneous
  Country: US (occurrence: US)
  Receive Date: 20151120
  Receipt Date: 20151125
  Transmission Date: 20160304
  Serious: Yes (Hospitalization)
  Sender: FDA-Public Use
  Company Number: US-SAGENTPRD-2015-US-000030

PATIENT
  Sex: Female

DRUGS (1)
  1. HEPARIN SODIUM. [Suspect]
     Active Substance: HEPARIN SODIUM
     Dosage: 25,000 UNITS TOTAL DOSE
     Route: 042
     Dates: start: 20151022

REACTIONS (2)
  - Heparin-induced thrombocytopenia [Unknown]
  - Intestinal ischaemia [None]

NARRATIVE: CASE EVENT DATE: 20151022
